FAERS Safety Report 11066157 (Version 2)
Quarter: 2015Q2

REPORT INFORMATION
  Report Type: Spontaneous
  Country: US (occurrence: US)
  Receive Date: 20150425
  Receipt Date: 20150525
  Transmission Date: 20150821
  Serious: No
  Sender: FDA-Public Use
  Company Number: US-JNJFOC-20130315611

PATIENT
  Age: 60 Year
  Sex: Female
  Weight: 104.78 kg

DRUGS (21)
  1. SIMPONI [Suspect]
     Active Substance: GOLIMUMAB
     Indication: ANKYLOSING SPONDYLITIS
     Route: 058
     Dates: start: 20130222
  2. QUINAPRIL [Concomitant]
     Active Substance: QUINAPRIL\QUINAPRIL HYDROCHLORIDE
     Indication: HYPERTENSION
     Route: 048
  3. MELOXICAM. [Concomitant]
     Active Substance: MELOXICAM
     Indication: FIBROMYALGIA
     Route: 048
  4. HYDROCODONE [Concomitant]
     Active Substance: HYDROCODONE
     Indication: PAIN
     Dosage: 7.5/325 MG , AS NEEDED
     Route: 048
  5. PRIMIDONE. [Concomitant]
     Active Substance: PRIMIDONE
     Indication: TREMOR
     Route: 048
     Dates: start: 2011
  6. CLONAZEPAM. [Concomitant]
     Active Substance: CLONAZEPAM
     Indication: PANIC ATTACK
     Route: 048
  7. ADVAIR HFA [Concomitant]
     Active Substance: FLUTICASONE PROPIONATE\SALMETEROL XINAFOATE
     Indication: RESPIRATORY DISORDER
     Route: 065
  8. SIMPONI [Suspect]
     Active Substance: GOLIMUMAB
     Indication: ANKYLOSING SPONDYLITIS
     Route: 058
     Dates: start: 20130322
  9. LYRICA [Concomitant]
     Active Substance: PREGABALIN
     Indication: FIBROMYALGIA
     Route: 048
  10. FLUOXETINE [Concomitant]
     Active Substance: FLUOXETINE\FLUOXETINE HYDROCHLORIDE
     Indication: DEPRESSION
     Route: 048
  11. SINGULAIR [Concomitant]
     Active Substance: MONTELUKAST SODIUM
     Indication: ASTHMA
     Dosage: AT NIGHT
     Route: 048
  12. CYMBALTA [Concomitant]
     Active Substance: DULOXETINE HYDROCHLORIDE
     Indication: FIBROMYALGIA
     Dosage: BEDTIME
     Route: 048
  13. ALBUTEROL. [Concomitant]
     Active Substance: ALBUTEROL
     Indication: RESPIRATORY DISORDER
     Route: 065
  14. METFORMIN [Concomitant]
     Active Substance: METFORMIN HYDROCHLORIDE
     Indication: DIABETES MELLITUS
     Route: 048
  15. SPIRIVA [Concomitant]
     Active Substance: TIOTROPIUM BROMIDE MONOHYDRATE
     Indication: RESPIRATORY DISORDER
     Route: 065
  16. HYDROCHLOROTHIAZIDE. [Concomitant]
     Active Substance: HYDROCHLOROTHIAZIDE
     Indication: HYPERTENSION
     Route: 048
  17. PREDNISONE. [Concomitant]
     Active Substance: PREDNISONE
     Indication: ANKYLOSING SPONDYLITIS
     Route: 048
     Dates: start: 201302
  18. ZETIA [Concomitant]
     Active Substance: EZETIMIBE
     Indication: BLOOD CHOLESTEROL
     Route: 048
  19. NEXIUM [Concomitant]
     Active Substance: ESOMEPRAZOLE MAGNESIUM
     Indication: GASTROOESOPHAGEAL REFLUX DISEASE
     Route: 048
  20. TRAZODONE [Concomitant]
     Active Substance: TRAZODONE HYDROCHLORIDE
     Indication: SLEEP DISORDER
     Dosage: BEDTIME
     Route: 048
     Dates: start: 201301
  21. NASOCORT [Concomitant]
     Active Substance: BUDESONIDE
     Indication: RESPIRATORY DISORDER
     Route: 065

REACTIONS (2)
  - Device malfunction [Unknown]
  - Underdose [Not Recovered/Not Resolved]

NARRATIVE: CASE EVENT DATE: 20130322
